FAERS Safety Report 18905095 (Version 1)
Quarter: 2021Q1

REPORT INFORMATION
  Report Type: Spontaneous
  Country: US (occurrence: US)
  Receive Date: 20210217
  Receipt Date: 20210217
  Transmission Date: 20210420
  Serious: Yes (Other)
  Sender: FDA-Public Use
  Company Number: US-ASTRAZENECA-2021A049443

PATIENT
  Age: 18471 Day
  Sex: Male
  Weight: 115.2 kg

DRUGS (97)
  1. PROAIR HFA [Concomitant]
     Active Substance: ALBUTEROL SULFATE
  2. LEVEMIR [Concomitant]
     Active Substance: INSULIN DETEMIR
  3. INVOKANA [Concomitant]
     Active Substance: CANAGLIFLOZIN
  4. DILTIAZEM. [Concomitant]
     Active Substance: DILTIAZEM
  5. JANUVIA [Concomitant]
     Active Substance: SITAGLIPTIN PHOSPHATE
  6. CICLOPIROX. [Concomitant]
     Active Substance: CICLOPIROX
  7. PRODIGY [Concomitant]
  8. BREO ELLIPTA [Concomitant]
     Active Substance: FLUTICASONE FUROATE\VILANTEROL TRIFENATATE
  9. CEFTRIAXONE. [Concomitant]
     Active Substance: CEFTRIAXONE
  10. BARIUM SULFATE [Concomitant]
     Active Substance: BARIUM SULFATE
  11. HYDRALAZINE [Concomitant]
     Active Substance: HYDRALAZINE HYDROCHLORIDE
     Indication: HYPERTENSION
  12. AMOXICILLIN. [Concomitant]
     Active Substance: AMOXICILLIN
  13. CLOTRIMAZOLE. [Concomitant]
     Active Substance: CLOTRIMAZOLE
  14. AMMONIUM LACTATE. [Concomitant]
     Active Substance: AMMONIUM LACTATE
  15. HYDROCHLOROTHIAZIDE. [Concomitant]
     Active Substance: HYDROCHLOROTHIAZIDE
  16. ATORVASTATIN [Concomitant]
     Active Substance: ATORVASTATIN
  17. POLYETHYLENE GLYCOL [Concomitant]
     Active Substance: POLYETHYLENE GLYCOLS
  18. FLUCELVAX NOS [Concomitant]
     Active Substance: INFLUENZA A VIRUS A/BRISBANE/10/2010 (H1N1) ANTIGEN (MDCK CELL DERIVED, PROPIOLACTONE INACTIVATED)\INFLUENZA A VIRUS A/VICTORIA/361/2011 IVR-165 (H3N2) ANTIGEN (MDCK CELL DERIVED, PROPIOLACTONE INACTIVATED)\INFLUENZA B VIRUS B/WISCONSIN/1/2010) ANTIGEN (MDCK CELL DERIVED, PROPIOLACTONE INACTIVATED)
  19. ARIPIPRAZOLE. [Concomitant]
     Active Substance: ARIPIPRAZOLE
  20. KETOCONAZOLE. [Concomitant]
     Active Substance: KETOCONAZOLE
  21. ATORVASTATIN CALCIUM. [Concomitant]
     Active Substance: ATORVASTATIN CALCIUM
  22. FLUTICASONE. [Concomitant]
     Active Substance: FLUTICASONE
  23. METHADONE [Concomitant]
     Active Substance: METHADONE HYDROCHLORIDE
  24. FLORICET [Concomitant]
  25. ATIVAN [Concomitant]
     Active Substance: LORAZEPAM
  26. BENZOCAINE?MENTHOL [Concomitant]
  27. FOLIC ACID. [Concomitant]
     Active Substance: FOLIC ACID
  28. AFLURIA NOS [Concomitant]
     Active Substance: INFLUENZA VIRUS VACCINE TRIVALENT TYPE A+B AFLURIA
  29. TOBRAMYCIN. [Concomitant]
     Active Substance: TOBRAMYCIN
  30. FLUTICASONE PROP [Concomitant]
     Active Substance: FLUTICASONE PROPIONATE
  31. BENZONATATE. [Concomitant]
     Active Substance: BENZONATATE
  32. GABAPENTIN. [Concomitant]
     Active Substance: GABAPENTIN
  33. CHANTIX [Concomitant]
     Active Substance: VARENICLINE TARTRATE
  34. SERTRALINE HYDROCHLORIDE. [Concomitant]
     Active Substance: SERTRALINE HYDROCHLORIDE
  35. DICLOFENAC [Concomitant]
     Active Substance: DICLOFENAC
  36. METOCLOPRAMIDE. [Concomitant]
     Active Substance: METOCLOPRAMIDE
  37. ASPIRIN. [Concomitant]
     Active Substance: ASPIRIN
  38. HEPARIN [Concomitant]
     Active Substance: HEPARIN SODIUM
  39. PREDNISONE. [Concomitant]
     Active Substance: PREDNISONE
  40. GLUCAGON. [Concomitant]
     Active Substance: GLUCAGON
  41. PROTONIX [Suspect]
     Active Substance: PANTOPRAZOLE SODIUM
     Indication: GASTROOESOPHAGEAL REFLUX DISEASE
     Route: 065
  42. IRBESARTAN. [Concomitant]
     Active Substance: IRBESARTAN
  43. GAVILYTE ? N [Concomitant]
     Active Substance: POLYETHYLENE GLYCOL 3350\POTASSIUM CHLORIDE\SODIUM BICARBONATE\SODIUM CHLORIDE
  44. DICLOFENAC SODIUM. [Concomitant]
     Active Substance: DICLOFENAC SODIUM
  45. SODIUM CHLORIDE. [Concomitant]
     Active Substance: SODIUM CHLORIDE
  46. BLUEBERRY. [Concomitant]
     Active Substance: BLUEBERRY
  47. ALCOHOL. [Concomitant]
     Active Substance: ALCOHOL
  48. CARBAMIDE PEROXIDE [Concomitant]
     Active Substance: CARBAMIDE PEROXIDE
  49. NEXIUM [Suspect]
     Active Substance: ESOMEPRAZOLE MAGNESIUM
     Indication: GASTROOESOPHAGEAL REFLUX DISEASE
     Route: 048
     Dates: end: 201509
  50. BYDUREON [Concomitant]
     Active Substance: EXENATIDE
  51. BUTALB?ACETAMIN?CAFF [Concomitant]
     Active Substance: ACETAMINOPHEN\BUTALBITAL\CAFFEINE
  52. LORATADINE. [Concomitant]
     Active Substance: LORATADINE
  53. SULFAMETHOXAZOLE?TMP [Concomitant]
     Active Substance: SULFAMETHOXAZOLE\TRIMETHOPRIM
  54. BASAGLAR [Concomitant]
     Active Substance: INSULIN GLARGINE
  55. LIDOCAINE. [Concomitant]
     Active Substance: LIDOCAINE
  56. VANCOMYCIN [Concomitant]
     Active Substance: VANCOMYCIN
  57. BUPRENORPHINE. [Concomitant]
     Active Substance: BUPRENORPHINE
  58. OMNIPAQUE [Concomitant]
     Active Substance: IOHEXOL
  59. KAYEXALATE [Concomitant]
     Active Substance: SODIUM POLYSTYRENE SULFONATE
  60. PENICILLIN VK [Concomitant]
     Active Substance: PENICILLIN V POTASSIUM
  61. AMINOPHYLLINE. [Concomitant]
     Active Substance: AMINOPHYLLINE
  62. TUMS [Concomitant]
     Active Substance: CALCIUM CARBONATE
  63. KLOR?CON [Concomitant]
     Active Substance: POTASSIUM CHLORIDE
     Indication: HYPOKALAEMIA
  64. NOVOLOG [Concomitant]
     Active Substance: INSULIN ASPART
  65. HYDROCODONE?APAP [Concomitant]
     Active Substance: ACETAMINOPHEN\HYDROCODONE
  66. AZITHROMYCIN ANHYDROUS. [Concomitant]
     Active Substance: AZITHROMYCIN ANHYDROUS
  67. HUMALOG [Concomitant]
     Active Substance: INSULIN LISPRO
  68. NICOTINE. [Concomitant]
     Active Substance: NICOTINE
  69. ISOSORBIDE MONOHYDRATE [Concomitant]
  70. PATADAY [Concomitant]
     Active Substance: OLOPATADINE HYDROCHLORIDE
  71. PROMETHAZINE [Concomitant]
     Active Substance: PROMETHAZINE HYDROCHLORIDE
  72. TIZANIDINE. [Concomitant]
     Active Substance: TIZANIDINE
  73. TRULICITY [Concomitant]
     Active Substance: DULAGLUTIDE
  74. EZETIMIBE. [Concomitant]
     Active Substance: EZETIMIBE
  75. MYLANTA [Concomitant]
     Active Substance: ALUMINUM HYDROXIDE\DIMETHICONE\MAGNESIUM HYDROXIDE
  76. DILTIAZEM HYDROCHLORIDE. [Concomitant]
     Active Substance: DILTIAZEM HYDROCHLORIDE
  77. MEDROL [Concomitant]
     Active Substance: METHYLPREDNISOLONE
  78. LEXISCAN [Concomitant]
     Active Substance: REGADENOSON
  79. PREVACID [Suspect]
     Active Substance: LANSOPRAZOLE
     Indication: GASTROOESOPHAGEAL REFLUX DISEASE
     Route: 065
  80. LISINOPRIL. [Concomitant]
     Active Substance: LISINOPRIL
     Indication: HYPERTENSION
  81. CARVEDILOL. [Concomitant]
     Active Substance: CARVEDILOL
     Indication: HYPERTENSION
  82. CLOPIDOGREL [Concomitant]
     Active Substance: CLOPIDOGREL BISULFATE
  83. DOXYCYCLINE HYCLATE. [Concomitant]
     Active Substance: DOXYCYCLINE HYCLATE
  84. CLOPIDOGREL BISULFATE. [Concomitant]
     Active Substance: CLOPIDOGREL BISULFATE
  85. OXYCODONE [Concomitant]
     Active Substance: OXYCODONE
  86. CRANBERRY. [Concomitant]
     Active Substance: CRANBERRY
  87. PROTONIX [Suspect]
     Active Substance: PANTOPRAZOLE SODIUM
     Indication: GASTROOESOPHAGEAL REFLUX DISEASE
     Dosage: GENERIC
     Route: 065
     Dates: end: 2019
  88. AMOX TR?K CLV [Concomitant]
     Active Substance: AMOXICILLIN\CLAVULANATE POTASSIUM
  89. ONDANSETRON [Concomitant]
     Active Substance: ONDANSETRON
  90. AMLODIPINE BESYLATE. [Concomitant]
     Active Substance: AMLODIPINE BESYLATE
  91. ERYTHROMYCIN. [Concomitant]
     Active Substance: ERYTHROMYCIN
  92. TAMIFLU [Concomitant]
     Active Substance: OSELTAMIVIR PHOSPHATE
  93. BUMETANIDE. [Concomitant]
     Active Substance: BUMETANIDE
  94. MECLIZINE [Concomitant]
     Active Substance: MECLIZINE HYDROCHLORIDE
  95. PEPCID [Concomitant]
     Active Substance: FAMOTIDINE
  96. VITAMIN B12 [Concomitant]
     Active Substance: CYANOCOBALAMIN
  97. DEXTROSE. [Concomitant]
     Active Substance: DEXTROSE

REACTIONS (4)
  - Acute kidney injury [Not Recovered/Not Resolved]
  - End stage renal disease [Unknown]
  - Renal failure [Unknown]
  - Chronic kidney disease [Not Recovered/Not Resolved]

NARRATIVE: CASE EVENT DATE: 20160920
